FAERS Safety Report 23636526 (Version 1)
Quarter: 2024Q1

REPORT INFORMATION
  Report Type: Spontaneous
  Country: US (occurrence: US)
  Receive Date: 20240315
  Receipt Date: 20240315
  Transmission Date: 20240410
  Serious: Yes (Life-Threatening, Hospitalization, Other)
  Sender: FDA-Public Use
  Company Number: US-SUN PHARMACEUTICAL INDUSTRIES LTD-2024R1-436174

PATIENT
  Age: 34 Year
  Sex: Male

DRUGS (1)
  1. IBUPROFEN [Suspect]
     Active Substance: IBUPROFEN
     Indication: Product used for unknown indication
     Dosage: UNK (400 PILLS)
     Route: 048

REACTIONS (10)
  - Overdose [Unknown]
  - Suicide attempt [Unknown]
  - Shock [Recovered/Resolved]
  - Metabolic acidosis [Recovered/Resolved]
  - Multiple organ dysfunction syndrome [Recovered/Resolved]
  - Renal tubular necrosis [Recovered/Resolved]
  - Electrocardiogram T wave peaked [Recovered/Resolved]
  - Polyuria [Recovered/Resolved]
  - Blood pressure decreased [Recovered/Resolved]
  - Respiratory rate increased [Recovered/Resolved]
